FAERS Safety Report 8916471 (Version 1)
Quarter: 2012Q4

REPORT INFORMATION
  Report Type: 
  Country: US (occurrence: US)
  Receive Date: 20121120
  Receipt Date: 20121120
  Transmission Date: 20130627
  Serious: No
  Sender: FDA-Public Use
  Company Number: US-BAYER-2012-120940

PATIENT
  Sex: Female

DRUGS (1)
  1. ALEVE CAPLET/TABLET,MIDOL EXTENDED RELIEF CAPLET [Suspect]
     Indication: UNILATERAL LEG PAIN
     Dosage: 2 DF, UNK
     Route: 048
     Dates: start: 20121108

REACTIONS (1)
  - Drug ineffective [Not Recovered/Not Resolved]
